FAERS Safety Report 19287172 (Version 1)
Quarter: 2021Q2

REPORT INFORMATION
  Report Type: Spontaneous
  Country: US (occurrence: US)
  Receive Date: 20210521
  Receipt Date: 20210521
  Transmission Date: 20210717
  Serious: No
  Sender: FDA-Public Use
  Company Number: US-GW PHARMA-202105USGW02402

PATIENT

DRUGS (1)
  1. EPIDIOLEX [Suspect]
     Active Substance: CANNABIDIOL
     Indication: NEONATAL SEIZURE
     Dosage: 80 MILLIGRAM
     Route: 048
     Dates: start: 20210422

REACTIONS (2)
  - Product administered to patient of inappropriate age [Unknown]
  - Seizure [Unknown]

NARRATIVE: CASE EVENT DATE: 2021
